FAERS Safety Report 8834666 (Version 2)
Quarter: 2013Q2

REPORT INFORMATION
  Report Type: Report from Study
  Country: JP (occurrence: JP)
  Receive Date: 20121010
  Receipt Date: 20130412
  Transmission Date: 20140414
  Serious: Yes (Hospitalization)
  Sender: FDA-Public Use
  Company Number: PHHY2012JP088805

PATIENT
  Age: 23 Year
  Sex: Female

DRUGS (6)
  1. FTY 720 [Suspect]
     Indication: MULTIPLE SCLEROSIS RELAPSE
     Dosage: 0.5 MG, QD
     Route: 048
     Dates: start: 20120323
  2. MYTEAR [Concomitant]
     Dosage: UNK
     Route: 031
     Dates: start: 20120612, end: 20120814
  3. GOSHAJINKIGAN [Concomitant]
     Dosage: UNK
     Route: 048
     Dates: start: 20120814
  4. HYALEIN [Concomitant]
     Dosage: UNK
     Route: 031
  5. LOXOPROFEN [Concomitant]
     Dosage: UNK
     Route: 048
  6. MUCOSTA [Concomitant]
     Dosage: UNK
     Route: 048

REACTIONS (3)
  - Urinary tract infection [Recovered/Resolved]
  - White blood cell count decreased [Recovered/Resolved]
  - Vitreous adhesions [Not Recovered/Not Resolved]
